FAERS Safety Report 23381300 (Version 1)
Quarter: 2024Q1

REPORT INFORMATION
  Report Type: Spontaneous
  Country: US (occurrence: US)
  Receive Date: 20240109
  Receipt Date: 20240109
  Transmission Date: 20240410
  Serious: Yes (Other)
  Sender: FDA-Public Use
  Company Number: US-NOVOPROD-1158794

PATIENT
  Age: 42 Year
  Sex: Female

DRUGS (1)
  1. SAXENDA [Suspect]
     Active Substance: LIRAGLUTIDE
     Indication: Weight control
     Dosage: STARTED ON LOWEST DOSE AND BEGAN TITRATING. 0.6, 1.2. 1.8
     Route: 058
     Dates: start: 20210701, end: 20210801

REACTIONS (3)
  - Gastrointestinal disorder [Unknown]
  - Crohn^s disease [Unknown]
  - Diarrhoea [Recovered/Resolved]

NARRATIVE: CASE EVENT DATE: 20210704
